FAERS Safety Report 11055061 (Version 1)
Quarter: 2015Q2

REPORT INFORMATION
  Report Type: Spontaneous
  Country: US (occurrence: None)
  Receive Date: 20150421
  Receipt Date: 20150421
  Transmission Date: 20150821
  Serious: No
  Sender: FDA-Public Use
  Company Number: None

PATIENT
  Age: 71 Year
  Sex: Female
  Weight: 68.04 kg

DRUGS (6)
  1. CITALOPRAM [Suspect]
     Active Substance: CITALOPRAM HYDROBROMIDE
     Indication: ANXIETY
     Dosage: TAKEN BY MOUTH, 1 AND 1/2 TABS
     Route: 048
     Dates: start: 20120301, end: 20150301
  2. GLUCOSAMINE [Concomitant]
     Active Substance: GLUCOSAMINE
  3. SYNTHROID [Concomitant]
     Active Substance: LEVOTHYROXINE SODIUM
  4. EFFEXOR [Concomitant]
     Active Substance: VENLAFAXINE HYDROCHLORIDE
  5. MULTIVITAMIN FOR SENIORS [Concomitant]
  6. CITALOPRAM [Suspect]
     Active Substance: CITALOPRAM HYDROBROMIDE
     Indication: DEPRESSION
     Dosage: TAKEN BY MOUTH, 1 AND 1/2 TABS
     Route: 048
     Dates: start: 20120301, end: 20150301

REACTIONS (2)
  - Hypogeusia [None]
  - Hyposmia [None]

NARRATIVE: CASE EVENT DATE: 20150301
